FAERS Safety Report 5163866-6 (Version None)
Quarter: 2006Q4

REPORT INFORMATION
  Report Type: 
  Country: None (occurrence: None)
  Receive Date: 20061124
  Receipt Date: 20061110
  Transmission Date: 20070319
  Serious: Yes (Hospitalization)
  Sender: FDA-Public Use
  Company Number: 2006098340

PATIENT
  Age: 88 Year
  Sex: Male
  Weight: 61.2356 kg

DRUGS (9)
  1. LYRICA [Suspect]
     Indication: NEUROPATHY
     Dosage: 75 MG (75 MG, 1 D)
  2. ALLOPURINOL [Concomitant]
  3. AMIODARONE HCL [Concomitant]
  4. SINEMET [Concomitant]
  5. LASIX [Concomitant]
  6. SYNTHROID [Concomitant]
  7. ASPIRIN [Concomitant]
  8. COREG [Concomitant]
  9. LISINOPRIL [Concomitant]

REACTIONS (4)
  - ASTHENIA [None]
  - CARPAL TUNNEL SYNDROME [None]
  - NERVE CONDUCTION STUDIES ABNORMAL [None]
  - NEUROPATHY PERIPHERAL [None]
